FAERS Safety Report 24187558 (Version 1)
Quarter: 2024Q3

REPORT INFORMATION
  Report Type: Spontaneous
  Country: JP (occurrence: JP)
  Receive Date: 20240808
  Receipt Date: 20240808
  Transmission Date: 20241016
  Serious: Yes (Other)
  Sender: RANBAXY
  Company Number: JP-SUN PHARMACEUTICAL INDUSTRIES LTD-2024R1-460985

PATIENT
  Sex: Male

DRUGS (1)
  1. TESTOSTERONE [Suspect]
     Active Substance: TESTOSTERONE
     Indication: Primary hypogonadism
     Dosage: 12.5 MILLIGRAM (ONCE MONTHLY)
     Route: 065

REACTIONS (4)
  - Gynaecomastia [Unknown]
  - Tremor [Unknown]
  - Bone density decreased [Unknown]
  - Mood swings [Unknown]
